FAERS Safety Report 8436119-8 (Version None)
Quarter: 2012Q2

REPORT INFORMATION
  Report Type: 
  Country: None (occurrence: None)
  Receive Date: 20120614
  Receipt Date: 20120607
  Transmission Date: 20120825
  Serious: Yes (Hospitalization)
  Sender: FDA-Public Use
  Company Number: FR-ROCHE-1076924

PATIENT
  Sex: Male
  Weight: 74 kg

DRUGS (5)
  1. ROFERON-A [Suspect]
     Indication: METASTATIC RENAL CELL CARCINOMA
     Route: 058
     Dates: start: 20100624, end: 20100818
  2. AVASTIN [Suspect]
     Indication: METASTATIC RENAL CELL CARCINOMA
     Route: 042
     Dates: start: 20100624, end: 20100805
  3. LOVENOX [Concomitant]
  4. AVASTIN [Suspect]
     Route: 042
     Dates: start: 20100909, end: 20100916
  5. ROFERON-A [Suspect]
     Dates: end: 20100916

REACTIONS (3)
  - VERTIGO [None]
  - CERUMEN IMPACTION [None]
  - HAEMATOMA [None]
